FAERS Safety Report 7983469-5 (Version None)
Quarter: 2011Q4

REPORT INFORMATION
  Report Type: 
  Country: None (occurrence: None)
  Receive Date: 20111215
  Receipt Date: 20111208
  Transmission Date: 20120403
  Serious: Yes (Hospitalization, Other)
  Sender: FDA-Public Use
  Company Number: JP-CEPHALON-2011002981

PATIENT
  Sex: Female
  Weight: 58 kg

DRUGS (11)
  1. TEPRENONE [Concomitant]
  2. ITRACONAZOLE [Concomitant]
  3. SULFAMETHOXAZOLE AND TRIMETHOPRIM [Concomitant]
  4. GRANISETRON HCL [Concomitant]
     Dates: start: 20101221, end: 20110112
  5. LEVOFLOXACIN [Concomitant]
  6. OMEPRAZOLE [Concomitant]
  7. MAGNESIUM OXIDE [Concomitant]
  8. BENDAMUSTINE HCL [Suspect]
     Indication: B-CELL LYMPHOMA
     Route: 042
     Dates: start: 20101221, end: 20110112
  9. IBUPROFEN [Concomitant]
     Dates: start: 20110111, end: 20110111
  10. CHLORPHENIRAMINE MALEATE [Concomitant]
     Dates: start: 20110111, end: 20110111
  11. RITUXIMAB [Concomitant]
     Dates: start: 20101220, end: 20110111

REACTIONS (5)
  - BACK PAIN [None]
  - PANCYTOPENIA [None]
  - LYMPHOCYTE COUNT DECREASED [None]
  - ASTEATOSIS [None]
  - WHITE BLOOD CELL COUNT DECREASED [None]
